FAERS Safety Report 5210305-2 (Version None)
Quarter: 2007Q1

REPORT INFORMATION
  Report Type: 
  Country: None (occurrence: None)
  Receive Date: 20070111
  Receipt Date: 20061228
  Transmission Date: 20070707
  Serious: Yes (Death)
  Sender: FDA-Public Use
  Company Number: URSO-2006-056

PATIENT
  Age: 68 Year
  Sex: Female

DRUGS (2)
  1. URSO 250 [Suspect]
     Dosage: PO
     Route: 048
     Dates: end: 20040201
  2. 5 CONCOMITANT MEDICATIONS WERE USED (CONCOMITANT MEDICATIONS UNSPECIFI [Concomitant]

REACTIONS (1)
  - INTERSTITIAL LUNG DISEASE [None]
